FAERS Safety Report 20051425 (Version 1)
Quarter: 2021Q4

REPORT INFORMATION
  Report Type: Spontaneous
  Country: US (occurrence: US)
  Receive Date: 20211110
  Receipt Date: 20211110
  Transmission Date: 20220304
  Serious: No
  Sender: FDA-Public Use
  Company Number: US-JNJFOC-20211116496

PATIENT
  Age: 60 Year
  Sex: Female

DRUGS (2)
  1. TYLENOL [Suspect]
     Active Substance: ACETAMINOPHEN
     Indication: Myalgia
     Route: 065
  2. HUMIRA [Suspect]
     Active Substance: ADALIMUMAB
     Indication: Product used for unknown indication
     Route: 058
     Dates: start: 20210520

REACTIONS (4)
  - Myalgia [Unknown]
  - Drug hypersensitivity [Unknown]
  - Pollakiuria [Unknown]
  - Sinusitis [Unknown]

NARRATIVE: CASE EVENT DATE: 20210610
